APPROVED DRUG PRODUCT: QUINIDINE SULFATE
Active Ingredient: QUINIDINE SULFATE
Strength: 300MG
Dosage Form/Route: TABLET, EXTENDED RELEASE;ORAL
Application: A040045 | Product #001
Applicant: COSETTE PHARMACEUTICALS INC
Approved: Jun 30, 1994 | RLD: No | RS: No | Type: DISCN